FAERS Safety Report 8343662-9 (Version None)
Quarter: 2012Q2

REPORT INFORMATION
  Report Type: 
  Country: None (occurrence: None)
  Receive Date: 20120508
  Receipt Date: 20120502
  Transmission Date: 20120825
  Serious: Yes (Other)
  Sender: FDA-Public Use
  Company Number: AU-TEVA-336534USA

PATIENT
  Sex: Male

DRUGS (10)
  1. INSULIN ASPART [Concomitant]
  2. GLICLAZIDE [Concomitant]
  3. METFORMIN [Concomitant]
  4. ENOXAPARIN SODIUM [Concomitant]
  5. INSULIN ASPART [Concomitant]
  6. INSULIN ASPART [Concomitant]
  7. TREANDA [Suspect]
     Dosage: UID/QD
     Route: 042
     Dates: start: 20120319, end: 20120320
  8. ATORVASTATIN CALCIUM [Concomitant]
  9. TREANDA [Suspect]
     Dosage: UID/QD
     Route: 042
     Dates: start: 20120227, end: 20120228
  10. TREANDA [Suspect]
     Dosage: UID/QD
     Route: 042
     Dates: start: 20120411

REACTIONS (1)
  - ATRIAL FIBRILLATION [None]
